FAERS Safety Report 6659086-6 (Version None)
Quarter: 2010Q1

REPORT INFORMATION
  Report Type: 
  Country: None (occurrence: None)
  Receive Date: 20100330
  Receipt Date: 20100319
  Transmission Date: 20100710
  Serious: Yes (Disabling)
  Sender: FDA-Public Use
  Company Number: PHHY2010US13578

PATIENT
  Sex: Female

DRUGS (11)
  1. EXTAVIA [Suspect]
     Indication: MULTIPLE SCLEROSIS
     Dosage: 0.125 MG, QOD
     Route: 058
     Dates: start: 20100301
  2. OXYCONTIN [Concomitant]
     Indication: PAIN
     Dosage: UNK,UNK
  3. CYMBALTA [Concomitant]
     Dosage: UNK,UNK
  4. LEXAPRO [Concomitant]
     Dosage: 40 MG, BID
     Route: 048
  5. ASACOL [Concomitant]
     Dosage: 400 MG, BID
     Route: 048
  6. CIPRO [Concomitant]
     Dosage: 100 MG, TID
  7. FLAGYL [Concomitant]
     Dosage: 100 MG, BID
  8. ELAVIL [Concomitant]
     Dosage: UNK,UNK
  9. VALIUM [Concomitant]
     Dosage: UNK,UNK
  10. TOPAMAX [Concomitant]
     Indication: CONVULSION
     Dosage: UNK,UNK
  11. VISTARIL [Concomitant]
     Indication: NAUSEA
     Dosage: UNK,UNK

REACTIONS (5)
  - BEDRIDDEN [None]
  - HEADACHE [None]
  - INJECTION SITE ERYTHEMA [None]
  - INJECTION SITE WARMTH [None]
  - MYALGIA [None]
